FAERS Safety Report 7212461-3 (Version None)
Quarter: 2010Q4

REPORT INFORMATION
  Report Type: 
  Country: None (occurrence: None)
  Receive Date: 20101227
  Receipt Date: 20101213
  Transmission Date: 20110411
  Serious: Yes (Hospitalization, Other)
  Sender: FDA-Public Use
  Company Number: 20108632

PATIENT
  Age: 42 Year
  Sex: Female

DRUGS (1)
  1. BACLOFEN [Suspect]
     Indication: MUSCLE SPASTICITY
     Dosage: 500 - 550 MCG, DAILY, INTRATHECAL
     Route: 037

REACTIONS (9)
  - ADHESION [None]
  - DEVICE BREAKAGE [None]
  - DEVICE MALFUNCTION [None]
  - DRUG RESISTANCE [None]
  - GAIT DISTURBANCE [None]
  - MEDICAL DEVICE COMPLICATION [None]
  - MUSCLE SPASMS [None]
  - MUSCLE SPASTICITY [None]
  - POCKET EROSION [None]
